FAERS Safety Report 6005558-7 (Version None)
Quarter: 2008Q4

REPORT INFORMATION
  Report Type: 
  Country: None (occurrence: None)
  Receive Date: 20081217
  Receipt Date: 20081212
  Transmission Date: 20090506
  Serious: Yes (Hospitalization)
  Sender: FDA-Public Use
  Company Number: US-BIOGENIDEC-2008BI033802

PATIENT
  Age: 29 Year
  Sex: Female

DRUGS (3)
  1. TYSABRI [Suspect]
     Indication: MULTIPLE SCLEROSIS
     Route: 042
     Dates: start: 20070404, end: 20070607
  2. TYSABRI [Suspect]
     Route: 042
     Dates: start: 20080125, end: 20080602
  3. TYSABRI [Suspect]
     Route: 042
     Dates: start: 20081030

REACTIONS (4)
  - BURNING SENSATION [None]
  - DYSPNOEA [None]
  - SYNCOPE [None]
  - VISUAL IMPAIRMENT [None]
